FAERS Safety Report 25614444 (Version 1)
Quarter: 2025Q3

REPORT INFORMATION
  Report Type: Spontaneous
  Country: GT (occurrence: GT)
  Receive Date: 20250729
  Receipt Date: 20250729
  Transmission Date: 20251021
  Serious: Yes (Other)
  Sender: NOVO NORDISK
  Company Number: GT-NOVOPROD-1481815

PATIENT
  Age: 41 Year
  Sex: Female

DRUGS (3)
  1. VICTOZA [Suspect]
     Active Substance: LIRAGLUTIDE
     Indication: Glucose tolerance impaired
     Dosage: 1 MG, QD
     Route: 058
     Dates: start: 202210, end: 20230226
  2. VICTOZA [Suspect]
     Active Substance: LIRAGLUTIDE
     Indication: Metabolic syndrome
  3. LEVOTHYROXINE SODIUM [Concomitant]
     Active Substance: LEVOTHYROXINE SODIUM
     Indication: Thyroid disorder
     Dosage: 75 MG, QD
     Route: 048
     Dates: start: 2020

REACTIONS (4)
  - Accident [Recovered/Resolved]
  - Foot fracture [Recovered/Resolved]
  - Product use in unapproved indication [Recovered/Resolved]
  - Product use issue [Recovered/Resolved]

NARRATIVE: CASE EVENT DATE: 20221001
